FAERS Safety Report 9391946 (Version 1)
Quarter: 2013Q3

REPORT INFORMATION
  Report Type: Spontaneous
  Country: US (occurrence: US)
  Receive Date: 20130709
  Receipt Date: 20130709
  Transmission Date: 20140515
  Serious: No
  Sender: FDA-Public Use
  Company Number: US-009507513-1307USA002417

PATIENT
  Sex: Male
  Weight: 68.27 kg

DRUGS (10)
  1. VICTRELIS [Suspect]
     Indication: HEPATITIS C
     Dosage: TAKE 4 CAPSULES BY MOUTH EVERY 7-9 HOURS
     Route: 048
  2. REBETOL [Suspect]
     Route: 048
  3. PEGASYS [Suspect]
  4. PROCRIT [Concomitant]
  5. TYLENOL ARTHRITIS PAIN [Concomitant]
  6. NEUPOGEN [Concomitant]
  7. PRILOSEC [Concomitant]
  8. ALLEGRA [Concomitant]
  9. POTASSIUM CHLORIDE - USP [Concomitant]
  10. CHONDROITIN SULFATE SODIUM (+) GLUCOSAMINE SULFATE [Concomitant]

REACTIONS (2)
  - Pruritus [Unknown]
  - Red blood cell count decreased [Unknown]
